FAERS Safety Report 8219481-0 (Version None)
Quarter: 2012Q1

REPORT INFORMATION
  Report Type: 
  Country: None (occurrence: None)
  Receive Date: 20120319
  Receipt Date: 20120315
  Transmission Date: 20120608
  Serious: Yes (Other)
  Sender: FDA-Public Use
  Company Number: US-PFIZER INC-2012069912

PATIENT

DRUGS (1)
  1. CHANTIX [Suspect]
     Dosage: UNK

REACTIONS (6)
  - SKIN DISCOLOURATION [None]
  - OROPHARYNGEAL BLISTERING [None]
  - MENTAL DISORDER [None]
  - PARANOIA [None]
  - HALLUCINATION [None]
  - ANGER [None]
